FAERS Safety Report 9935788 (Version 4)
Quarter: 2014Q2

REPORT INFORMATION
  Report Type: Report from Study
  Country: AU (occurrence: AU)
  Receive Date: 20140228
  Receipt Date: 20140421
  Transmission Date: 20141212
  Serious: Yes (Other)
  Sender: FDA-Public Use
  Company Number: PHHY2014AU024947

PATIENT
  Age: 90 Year
  Sex: Male
  Weight: 62 kg

DRUGS (8)
  1. ACLASTA [Suspect]
     Dosage: 5 MG/100ML, YEARLY
     Route: 042
     Dates: start: 20111221
  2. ACLASTA [Suspect]
     Dosage: 5 MG/100ML, YEARLY
     Route: 042
     Dates: start: 20121219
  3. CARTIA                                  /AUS/ [Concomitant]
     Dosage: 1 DF, IN THE MORNING
     Route: 048
  4. FORTISIP [Concomitant]
     Dosage: DAILY
  5. NEO B12 [Concomitant]
     Dosage: UNK UKN, UNK
     Route: 030
  6. OSTELIN VITAMIN D [Concomitant]
     Dosage: 1000 IU, BID
     Route: 048
  7. ZOLEDRONIC ACID [Concomitant]
     Dosage: UNK UKN, UNK
     Route: 042
  8. VIT D3 [Concomitant]
     Dosage: UNK UKN, UNK

REACTIONS (12)
  - Osteitis deformans [Unknown]
  - Prostatic specific antigen increased [Unknown]
  - Vitamin B12 deficiency [Not Recovered/Not Resolved]
  - Blood bicarbonate increased [Recovered/Resolved]
  - Blood albumin decreased [Not Recovered/Not Resolved]
  - Blood creatinine abnormal [Unknown]
  - Prostatic disorder [Unknown]
  - Vitamin B12 increased [Unknown]
  - Globulins increased [Not Recovered/Not Resolved]
  - Glomerular filtration rate decreased [Not Recovered/Not Resolved]
  - Blood urea increased [Not Recovered/Not Resolved]
  - Creatinine renal clearance abnormal [Not Recovered/Not Resolved]
